FAERS Safety Report 7005176-8 (Version None)
Quarter: 2010Q3

REPORT INFORMATION
  Report Type: 
  Country: None (occurrence: None)
  Receive Date: 20100920
  Receipt Date: 20100920
  Transmission Date: 20110219
  Serious: Yes (Hospitalization)
  Sender: FDA-Public Use
  Company Number: None

PATIENT
  Age: 53 Year
  Sex: Male
  Weight: 115.21 kg

DRUGS (3)
  1. LISINOPRIL [Suspect]
     Indication: GOUT
     Dosage: 40 MG EVERY DAY PO
     Route: 048
     Dates: start: 20090730, end: 20090902
  2. LISINOPRIL [Suspect]
     Indication: HYPERTENSION
     Dosage: 40 MG EVERY DAY PO
     Route: 048
     Dates: start: 20090730, end: 20090902
  3. ALLOPURINOL [Suspect]
     Dosage: 100 MG EVERY DAY PO
     Route: 048
     Dates: start: 20090730, end: 20090902

REACTIONS (3)
  - RASH GENERALISED [None]
  - RASH MACULO-PAPULAR [None]
  - SKIN EXFOLIATION [None]
